FAERS Safety Report 20224325 (Version 1)
Quarter: 2021Q4

REPORT INFORMATION
  Report Type: Spontaneous
  Country: CA (occurrence: CA)
  Receive Date: 20211223
  Receipt Date: 20211223
  Transmission Date: 20220303
  Serious: Yes (Other)
  Sender: FDA-Public Use
  Company Number: CA-PFIZER INC-2020022864

PATIENT
  Age: 70 Year
  Sex: Male

DRUGS (2)
  1. XELJANZ [Suspect]
     Active Substance: TOFACITINIB CITRATE
     Indication: Rheumatoid arthritis
     Dosage: 5 MG, TWICE DAILY
     Route: 048
     Dates: start: 20161201, end: 2021
  2. HYDROXYCHLOROQUINE [Concomitant]
     Active Substance: HYDROXYCHLOROQUINE
     Indication: Rheumatoid arthritis
     Dosage: 400 MG, ONCE DAILY
     Route: 048

REACTIONS (5)
  - Fournier^s gangrene [Recovered/Resolved]
  - Bacterial infection [Recovered/Resolved]
  - Abscess [Recovered/Resolved]
  - Post procedural infection [Recovered/Resolved]
  - Decreased immune responsiveness [Unknown]

NARRATIVE: CASE EVENT DATE: 20210101
